FAERS Safety Report 10136442 (Version 2)
Quarter: 2014Q2

REPORT INFORMATION
  Report Type: Spontaneous
  Country: US (occurrence: None)
  Receive Date: 20140425
  Receipt Date: 20140515
  Transmission Date: 20141212
  Serious: Yes (Hospitalization)
  Sender: FDA-Public Use
  Company Number: UTC-047423

PATIENT
  Age: 45 Year
  Sex: Female
  Weight: 72.57 kg

DRUGS (4)
  1. REMODULIN [Suspect]
     Indication: COR PULMONALE CHRONIC
     Dosage: 76.32 UG/KG (0.053 UG/KG,1 IN 1 MIN)
     Route: 058
     Dates: start: 20020626
  2. XARELTO (RIVAROXABAN) [Concomitant]
  3. ADCIRCA (TADALAFIL) [Concomitant]
  4. TRACLEER (BOSENTAN) [Concomitant]

REACTIONS (1)
  - Leg amputation [None]
